FAERS Safety Report 6130242-9 (Version None)
Quarter: 2009Q1

REPORT INFORMATION
  Report Type: 
  Country: None (occurrence: None)
  Receive Date: 20090324
  Receipt Date: 20090312
  Transmission Date: 20090719
  Serious: Yes (Other)
  Sender: FDA-Public Use
  Company Number: US-ELI_LILLY_AND_COMPANY-US200903003150

PATIENT
  Sex: Male

DRUGS (4)
  1. FORTEO [Suspect]
     Indication: OSTEOPOROSIS
     Dates: start: 20090201
  2. HUMALOG [Concomitant]
     Dosage: UNK, UNK
     Dates: start: 19940101
  3. LISINOPRIL [Concomitant]
  4. FOLIC ACID [Concomitant]

REACTIONS (6)
  - FACE INJURY [None]
  - FALL [None]
  - HYPOGLYCAEMIA [None]
  - LOSS OF CONSCIOUSNESS [None]
  - RIB FRACTURE [None]
  - TOOTH FRACTURE [None]
